FAERS Safety Report 9479232 (Version 2)
Quarter: 2013Q3

REPORT INFORMATION
  Report Type: Spontaneous
  Country: BR (occurrence: BR)
  Receive Date: 20130827
  Receipt Date: 20130827
  Transmission Date: 20140515
  Serious: Yes (Other)
  Sender: FDA-Public Use
  Company Number: BR-ABBOTT-12P-020-0939678-00

PATIENT
  Sex: Female
  Weight: 77 kg

DRUGS (9)
  1. DEPAKENE [Suspect]
     Indication: PRODUCT USED FOR UNKNOWN INDICATION
     Dosage: 1/2 TAB IN MORNING, 1/2 TAB AT NIGHT
     Route: 048
     Dates: start: 2011
  2. DEPAKENE [Suspect]
     Route: 048
     Dates: start: 2012
  3. DEPAKENE [Suspect]
     Route: 048
  4. PREMARIN [Suspect]
     Indication: LEIOMYOMA
  5. UNKNOWN MEDICATION [Concomitant]
     Indication: PRODUCT USED FOR UNKNOWN INDICATION
     Route: 048
  6. UNKNOWN MEDICATION [Concomitant]
     Indication: PRODUCT USED FOR UNKNOWN INDICATION
  7. DIAZEPAM [Concomitant]
     Indication: SLEEP DISORDER THERAPY
     Route: 048
  8. DIAZEPAM [Concomitant]
     Route: 048
     Dates: start: 1995
  9. LITHIUM CARBONATE [Concomitant]
     Indication: ELECTRIC SHOCK
     Route: 048
     Dates: start: 1993

REACTIONS (7)
  - Leiomyoma [Unknown]
  - Haemorrhage [Unknown]
  - Abdominal pain [Recovered/Resolved]
  - Abdominal pain [Not Recovered/Not Resolved]
  - Diarrhoea [Not Recovered/Not Resolved]
  - Abdominal pain [Recovered/Resolved]
  - Abdominal pain [Not Recovered/Not Resolved]
